FAERS Safety Report 10089243 (Version 1)
Quarter: 2014Q2

REPORT INFORMATION
  Report Type: Spontaneous
  Country: MX (occurrence: None)
  Receive Date: 20140417
  Receipt Date: 20140417
  Transmission Date: 20141212
  Serious: Yes (Death, Hospitalization)
  Sender: FDA-Public Use
  Company Number: 2014PL000063

PATIENT
  Age: 49 Year
  Sex: Male

DRUGS (5)
  1. ALLOPURINOL [Suspect]
     Indication: RENAL FAILURE CHRONIC
  2. FUROSEMIDE [Concomitant]
  3. CALCITRIOL [Concomitant]
  4. ENALAPRIL [Concomitant]
  5. FERROUS FUMARATE [Concomitant]

REACTIONS (21)
  - Drug reaction with eosinophilia and systemic symptoms [None]
  - Generalised erythema [None]
  - Malaise [None]
  - Pyrexia [None]
  - Tachycardia [None]
  - Tachypnoea [None]
  - Hypotension [None]
  - Face oedema [None]
  - Ocular icterus [None]
  - Eosinophil percentage increased [None]
  - Interstitial lung disease [None]
  - Respiratory failure [None]
  - Metabolic acidosis [None]
  - Acute hepatic failure [None]
  - Lichenoid keratosis [None]
  - Toxic skin eruption [None]
  - Disorientation [None]
  - Blood glucose increased [None]
  - Blood urea increased [None]
  - Blood creatinine increased [None]
  - Haemoglobin decreased [None]
